FAERS Safety Report 22320910 (Version 1)
Quarter: 2023Q2

REPORT INFORMATION
  Report Type: Spontaneous
  Country: US (occurrence: US)
  Receive Date: 20230515
  Receipt Date: 20230515
  Transmission Date: 20230722
  Serious: No
  Sender: FDA-Public Use
  Company Number: US-002147023-NVSC2023US110353

PATIENT
  Sex: Female

DRUGS (1)
  1. MEKINIST [Suspect]
     Active Substance: TRAMETINIB DIMETHYL SULFOXIDE
     Indication: Benign peripheral nerve sheath tumour
     Dosage: 2 MG (DAILY)
     Route: 048
     Dates: start: 202303

REACTIONS (3)
  - Acne [Unknown]
  - Dry skin [Unknown]
  - Product use in unapproved indication [Unknown]
